FAERS Safety Report 16568062 (Version 1)
Quarter: 2019Q3

REPORT INFORMATION
  Report Type: Other
  Country: US (occurrence: US)
  Receive Date: 20190712
  Receipt Date: 20190712
  Transmission Date: 20191004
  Serious: No
  Sender: FDA-Public Use
  Company Number: US-AMAG PHARMACEUTICALS, INC.-AMAG201900791

PATIENT
  Sex: Female

DRUGS (1)
  1. MAKENA [Suspect]
     Active Substance: HYDROXYPROGESTERONE CAPROATE
     Indication: PREMATURE DELIVERY
     Dosage: 250 MG/ML, WEEKLY
     Route: 058
     Dates: start: 20190110

REACTIONS (9)
  - Injection site mass [Not Recovered/Not Resolved]
  - Injection site swelling [Unknown]
  - Injection site nodule [Unknown]
  - Injection site extravasation [Unknown]
  - Underdose [Unknown]
  - Injection site pruritus [Not Recovered/Not Resolved]
  - Injection site irritation [Not Recovered/Not Resolved]
  - Injection site pain [Unknown]
  - Product administration error [Unknown]

NARRATIVE: CASE EVENT DATE: 2019
